FAERS Safety Report 20794309 (Version 1)
Quarter: 2022Q2

REPORT INFORMATION
  Report Type: Spontaneous
  Country: AU (occurrence: AU)
  Receive Date: 20220506
  Receipt Date: 20220506
  Transmission Date: 20220721
  Serious: Yes (Other)
  Sender: FDA-Public Use
  Company Number: AU-SA-2022SA147056

PATIENT
  Age: 28 Year
  Sex: Female

DRUGS (2)
  1. ALEMTUZUMAB [Suspect]
     Active Substance: ALEMTUZUMAB
     Indication: Relapsing-remitting multiple sclerosis
     Dosage: 12 MG
  2. ALEMTUZUMAB [Suspect]
     Active Substance: ALEMTUZUMAB
     Dosage: 12 MG

REACTIONS (10)
  - Aplasia pure red cell [Recovered/Resolved]
  - Normochromic normocytic anaemia [Recovered/Resolved]
  - Polychromasia [Recovered/Resolved]
  - Dyspnoea exertional [Recovered/Resolved]
  - Immune thrombocytopenia [Recovered/Resolved]
  - Thrombocytopenia [Recovered/Resolved]
  - Increased tendency to bruise [Recovered/Resolved]
  - Mucosal haemorrhage [Recovered/Resolved]
  - Autoimmune neutropenia [Recovered/Resolved]
  - Iron deficiency [Recovered/Resolved]
